FAERS Safety Report 20796219 (Version 1)
Quarter: 2022Q2

REPORT INFORMATION
  Report Type: Spontaneous
  Country: US (occurrence: US)
  Receive Date: 20220506
  Receipt Date: 20220506
  Transmission Date: 20220721
  Serious: Yes (Hospitalization, Other)
  Sender: FDA-Public Use
  Company Number: US-BRISTOL-MYERS SQUIBB COMPANY-2022-033308

PATIENT
  Age: 21 Month
  Sex: Female

DRUGS (4)
  1. ABATACEPT [Suspect]
     Active Substance: ABATACEPT
     Indication: Autoimmune enteropathy
     Dosage: INDUCTION DOSING INTERVAL ON DAYS 0, 6, 15, AND 30
     Route: 058
  2. ABATACEPT [Suspect]
     Active Substance: ABATACEPT
     Dosage: PER WEEK
     Route: 058
  3. RUXOLITINIB [Suspect]
     Active Substance: RUXOLITINIB
     Indication: Autoimmune enteropathy
     Route: 065
  4. ALEMTUZUMAB [Suspect]
     Active Substance: ALEMTUZUMAB
     Indication: Autoimmune enteropathy
     Dosage: 5 DAYS
     Route: 065

REACTIONS (6)
  - Autoimmune enteropathy [Unknown]
  - Condition aggravated [Unknown]
  - Pancreatitis acute [Unknown]
  - Hepatitis [Unknown]
  - Gastroenteritis [Unknown]
  - Intentional product use issue [Unknown]
